FAERS Safety Report 5330822-4 (Version None)
Quarter: 2007Q2

REPORT INFORMATION
  Report Type: 
  Country: None (occurrence: None)
  Receive Date: 20070518
  Receipt Date: 20070518
  Transmission Date: 20071010
  Serious: No
  Sender: FDA-Public Use
  Company Number: None

PATIENT
  Sex: Female
  Weight: 76.4311 kg

DRUGS (1)
  1. ADVAIR DISKUS 250/50 [Suspect]
     Indication: DYSPNOEA
     Dosage: 1 HALF TWICE/DAY 2X DAY ORAL
     Route: 048
     Dates: start: 20070310, end: 20070314

REACTIONS (1)
  - HEADACHE [None]
